FAERS Safety Report 10439274 (Version 1)
Quarter: 2014Q3

REPORT INFORMATION
  Report Type: Spontaneous
  Country: US (occurrence: US)
  Receive Date: 20140908
  Receipt Date: 20140908
  Transmission Date: 20150326
  Serious: No
  Sender: FDA-Public Use
  Company Number: US-BRISTOL-MYERS SQUIBB COMPANY-19199496

PATIENT
  Age: 55 Year
  Sex: Female
  Weight: 68.03 kg

DRUGS (3)
  1. XANAX [Concomitant]
     Active Substance: ALPRAZOLAM
  2. ABILIFY [Suspect]
     Active Substance: ARIPIPRAZOLE
     Indication: BIPOLAR DISORDER
  3. MIRTAZAPINE. [Concomitant]
     Active Substance: MIRTAZAPINE

REACTIONS (6)
  - Headache [Unknown]
  - Drug administration error [Unknown]
  - Anxiety [Unknown]
  - Sedation [Unknown]
  - Memory impairment [Unknown]
  - Weight increased [Unknown]
